FAERS Safety Report 16207428 (Version 3)
Quarter: 2019Q2

REPORT INFORMATION
  Report Type: Spontaneous
  Country: JP (occurrence: JP)
  Receive Date: 20190417
  Receipt Date: 20190519
  Transmission Date: 20190711
  Serious: Yes (Other)
  Sender: FDA-Public Use
  Company Number: JP-APOTEX-2019AP012005

PATIENT

DRUGS (3)
  1. PAXIL [Suspect]
     Active Substance: PAROXETINE HYDROCHLORIDE
     Indication: PANIC DISORDER
     Dosage: UNK
     Route: 048
  2. TAMOXIFEN [Concomitant]
     Active Substance: TAMOXIFEN
     Indication: BREAST CANCER
     Dosage: UNK
     Route: 065
  3. TAMOXIFEN [Concomitant]
     Active Substance: TAMOXIFEN
     Indication: NEOPLASM PROPHYLAXIS

REACTIONS (1)
  - Breast cancer [Unknown]
